FAERS Safety Report 5020492-7 (Version None)
Quarter: 2006Q2

REPORT INFORMATION
  Report Type: 
  Country: None (occurrence: None)
  Receive Date: 20060531
  Receipt Date: 20060504
  Transmission Date: 20061013
  Serious: Yes (Life-Threatening, Hospitalization)
  Sender: FDA-Public Use
  Company Number: WAES 0601GBR00061

PATIENT
  Age: 87 Year
  Sex: Male

DRUGS (18)
  1. ZOCOR [Suspect]
     Indication: HYPERCHOLESTEROLAEMIA
     Dosage: 20 MG/DAILY PO
     Route: 048
     Dates: start: 20051013, end: 20051222
  2. ASPIRIN [Suspect]
     Indication: CORONARY ARTERY DISEASE
     Dosage: UNK
     Route: 065
     Dates: start: 19930701, end: 20051222
  3. ACETAMINOPHEN [Concomitant]
  4. ALUMINUM HYDROXIDE/MG TRISILICATE [Concomitant]
  5. ATENOLOL [Concomitant]
  6. BENDROFLUMETHIAZIDE [Concomitant]
  7. CLOPIDOGREL BISULFATE [Concomitant]
  8. DIAZEPAM [Concomitant]
  9. ENOXAPARIN SODIUM [Concomitant]
  10. ISOSORBIDE MONONITRATE [Concomitant]
  11. LISINOPRIL [Concomitant]
  12. METOCLOPRAMIDE [Concomitant]
  13. METOPROLOL TARTRATE [Concomitant]
  14. MORPHINE [Concomitant]
  15. NIFEDIPINE [Concomitant]
  16. NITROGLYCERIN [Concomitant]
  17. RANITIDINE [Concomitant]
  18. TEMAZEPAM [Concomitant]

REACTIONS (20)
  - ABDOMINAL PAIN UPPER [None]
  - ACUTE MYOCARDIAL INFARCTION [None]
  - C-REACTIVE PROTEIN INCREASED [None]
  - CHEST PAIN [None]
  - CONTUSION [None]
  - DIZZINESS [None]
  - DRUG HYPERSENSITIVITY [None]
  - DYSPEPSIA [None]
  - DYSPNOEA [None]
  - ENTEROCOCCAL INFECTION [None]
  - FATIGUE [None]
  - GASTROINTESTINAL HAEMORRHAGE [None]
  - GINGIVAL PAIN [None]
  - HAEMOGLOBIN DECREASED [None]
  - HYPERTENSION [None]
  - INSOMNIA [None]
  - LEFT VENTRICULAR FAILURE [None]
  - MELAENA [None]
  - MYOCARDIAL ISCHAEMIA [None]
  - URINARY TRACT INFECTION [None]
